FAERS Safety Report 12712904 (Version 1)
Quarter: 2016Q3

REPORT INFORMATION
  Report Type: Spontaneous
  Country: US (occurrence: US)
  Receive Date: 20160902
  Receipt Date: 20160902
  Transmission Date: 20161109
  Serious: Yes (Other)
  Sender: FDA-Public Use
  Company Number: US-LUNDBECK-DKLU2018583

PATIENT
  Sex: Male

DRUGS (1)
  1. NORTHERA [Suspect]
     Active Substance: DROXIDOPA
     Indication: PARKINSON^S DISEASE
     Dates: start: 201511

REACTIONS (7)
  - Drooling [Unknown]
  - Ankle fracture [Recovered/Resolved with Sequelae]
  - Gait disturbance [Unknown]
  - Somnolence [Unknown]
  - Fall [Recovered/Resolved with Sequelae]
  - Hallucination [Unknown]
  - General physical health deterioration [Not Recovered/Not Resolved]
